FAERS Safety Report 13851807 (Version 3)
Quarter: 2017Q4

REPORT INFORMATION
  Report Type: Report from Study
  Country: None (occurrence: ES)
  Receive Date: 20170809
  Receipt Date: 20171010
  Transmission Date: 20180320
  Serious: Yes (Other)
  Sender: FDA-Public Use
  Company Number: ES-ABBVIE-17K-144-2062061-00

PATIENT
  Sex: Female
  Weight: 52 kg

DRUGS (2)
  1. DUODOPA [Suspect]
     Active Substance: CARBIDOPA\LEVODOPA
     Indication: PARKINSON^S DISEASE
     Route: 050
     Dates: start: 20170308, end: 2017
  2. DUODOPA [Suspect]
     Active Substance: CARBIDOPA\LEVODOPA
     Dosage: MD: 12.5 ML; CD: 4.3 ML/H; ED: 2 ML BLOCKED 3 HOURS
     Route: 050
     Dates: start: 2017

REACTIONS (7)
  - Weight decreased [Recovering/Resolving]
  - Apathy [Recovering/Resolving]
  - On and off phenomenon [Recovered/Resolved]
  - Extra dose administered [Recovered/Resolved]
  - Nausea [Recovered/Resolved]
  - Vomiting [Recovered/Resolved]
  - Drug effect incomplete [Recovered/Resolved]

NARRATIVE: CASE EVENT DATE: 2017
